FAERS Safety Report 5425643-8 (Version None)
Quarter: 2007Q3

REPORT INFORMATION
  Report Type: 
  Country: None (occurrence: None)
  Receive Date: 20070824
  Receipt Date: 20070814
  Transmission Date: 20080115
  Serious: Yes (Other)
  Sender: FDA-Public Use
  Company Number: GB-PFIZER INC-2007068096

PATIENT
  Age: 52 Year
  Sex: Male

DRUGS (1)
  1. EPANUTIN INJECTABLE [Suspect]
     Route: 042

REACTIONS (3)
  - BLOOD ALBUMIN DECREASED [None]
  - BLOOD UREA DECREASED [None]
  - CONVULSION [None]
